FAERS Safety Report 9998298 (Version 2)
Quarter: 2014Q1

REPORT INFORMATION
  Report Type: Spontaneous
  Country: DE (occurrence: DE)
  Receive Date: 20140312
  Receipt Date: 20140312
  Transmission Date: 20141002
  Serious: Yes (Death, Other)
  Sender: FDA-Public Use
  Company Number: DE-009507513-1402DEU006253

PATIENT
  Age: 43 Year
  Sex: Female

DRUGS (1)
  1. NOXAFIL [Suspect]
     Indication: PNEUMONIA FUNGAL
     Dosage: 10 ML, BID
     Route: 048
     Dates: start: 201205

REACTIONS (3)
  - Mean cell volume [Fatal]
  - Respiratory failure [Fatal]
  - Graft versus host disease in lung [Fatal]
